FAERS Safety Report 10076937 (Version 1)
Quarter: 2014Q2

REPORT INFORMATION
  Report Type: Spontaneous
  Country: FR (occurrence: None)
  Receive Date: 20140410
  Receipt Date: 20140410
  Transmission Date: 20141212
  Serious: Yes (Hospitalization)
  Sender: FDA-Public Use
  Company Number: B0982065A

PATIENT
  Age: 76 Year
  Sex: Female

DRUGS (2)
  1. PAROXETINE HYDROCHLORIDE [Suspect]
     Indication: EPILEPSY
     Route: 048
     Dates: end: 20140321
  2. CARBAMAZEPINE [Suspect]
     Indication: PARTIAL SEIZURES
     Route: 048

REACTIONS (2)
  - Hyponatraemia [None]
  - Off label use [None]
